FAERS Safety Report 6529543-1 (Version None)
Quarter: 2010Q1

REPORT INFORMATION
  Report Type: 
  Country: None (occurrence: None)
  Receive Date: 20100107
  Receipt Date: 20091229
  Transmission Date: 20100710
  Serious: Yes (Hospitalization)
  Sender: FDA-Public Use
  Company Number: FR-BAYER-201010071GPV

PATIENT
  Age: 61 Year
  Sex: Male

DRUGS (5)
  1. FLUDARA [Suspect]
     Indication: LYMPHOMA
     Dosage: LAST CYCLE
     Route: 048
     Dates: start: 20090101, end: 20090624
  2. MABTHERA [Suspect]
     Indication: LYMPHOMA
     Dosage: LAST CYCLE
     Route: 042
     Dates: start: 20090624, end: 20090624
  3. ZELITREX [Suspect]
     Indication: DRUG USE FOR UNKNOWN INDICATION
     Route: 048
     Dates: start: 20090501, end: 20090712
  4. BACTRIM DS [Suspect]
     Indication: DRUG USE FOR UNKNOWN INDICATION
     Route: 048
     Dates: start: 20090501, end: 20090712
  5. GRANOCYTE 34 [Concomitant]
     Dosage: 1 INJECTION /DAY IF PMN {500

REACTIONS (8)
  - CRYPTOSPORIDIOSIS INFECTION [None]
  - DIARRHOEA [None]
  - GROIN PAIN [None]
  - HYPOVOLAEMIC SHOCK [None]
  - NO THERAPEUTIC RESPONSE [None]
  - PYREXIA [None]
  - RASH MACULO-PAPULAR [None]
  - SEPSIS [None]
